FAERS Safety Report 8472750-1 (Version None)
Quarter: 2012Q2

REPORT INFORMATION
  Report Type: 
  Country: None (occurrence: None)
  Receive Date: 20120627
  Receipt Date: 20120615
  Transmission Date: 20120825
  Serious: Yes (Other)
  Sender: FDA-Public Use
  Company Number: JP-VERTEX PHARMACEUTICALS INC.-AE-2012-009104

PATIENT
  Age: 70 Year
  Sex: Male

DRUGS (9)
  1. RIBAVIRIN [Concomitant]
     Route: 048
     Dates: start: 20120329, end: 20120404
  2. TELAVIC (TELAPREVIR) [Suspect]
     Indication: HEPATITIS C
     Route: 048
     Dates: start: 20120309, end: 20120530
  3. RIBAVIRIN [Concomitant]
     Route: 048
     Dates: start: 20120405, end: 20120418
  4. RIBAVIRIN [Concomitant]
     Route: 048
     Dates: start: 20120510
  5. RIBAVIRIN [Concomitant]
     Indication: HEPATITIS C
     Route: 048
     Dates: start: 20120309, end: 20120328
  6. PEGINTERFERON ALFA-2B [Concomitant]
     Indication: HEPATITIS C
     Route: 051
     Dates: start: 20120309
  7. URSO 250 [Concomitant]
     Route: 048
  8. RIBAVIRIN [Concomitant]
     Route: 048
     Dates: start: 20120419
  9. RIBAVIRIN [Concomitant]
     Route: 048
     Dates: start: 20120502, end: 20120509

REACTIONS (1)
  - RETINAL HAEMORRHAGE [None]
